FAERS Safety Report 4951475-0 (Version None)
Quarter: 2006Q1

REPORT INFORMATION
  Report Type: 
  Country: None (occurrence: None)
  Receive Date: 20060317
  Receipt Date: 20060306
  Transmission Date: 20060701
  Serious: Yes (Hospitalization)
  Sender: FDA-Public Use
  Company Number: CERZ-11159

PATIENT
  Age: 78 Year
  Sex: Male
  Weight: 90.4 kg

DRUGS (1)
  1. CEREZYME [Suspect]
     Indication: GAUCHER'S DISEASE
     Dosage: 5400 UNITS Q2WKS IV
     Route: 042

REACTIONS (1)
  - RESPIRATORY TRACT INFECTION [None]
